FAERS Safety Report 12886366 (Version 2)
Quarter: 2017Q1

REPORT INFORMATION
  Report Type: Spontaneous
  Country: FR (occurrence: FR)
  Receive Date: 20161026
  Receipt Date: 20170316
  Transmission Date: 20170428
  Serious: Yes (Hospitalization)
  Sender: FDA-Public Use
  Company Number: FR-CELGENEUS-FRA-2016103670

PATIENT
  Age: 60 Year
  Sex: Male

DRUGS (9)
  1. ZOPHREN [Suspect]
     Active Substance: ONDANSETRON
     Indication: NAUSEA
     Route: 048
     Dates: start: 20160902, end: 20161003
  2. LASILIX [Suspect]
     Active Substance: FUROSEMIDE
     Indication: RENAL FAILURE
     Dosage: 125 MILLIGRAM
     Route: 048
     Dates: start: 20160912, end: 20161006
  3. INEXIUM [Suspect]
     Active Substance: ESOMEPRAZOLE
     Indication: GASTRITIS
     Dosage: 1 DOSAGE FORMS
     Route: 048
     Dates: start: 20160824, end: 20161003
  4. REVLIMID [Suspect]
     Active Substance: LENALIDOMIDE
     Indication: PLASMA CELL MYELOMA
     Dosage: 5 MILLIGRAM
     Route: 048
     Dates: start: 20160902, end: 20160920
  5. DEXAMETHASONE ORAL [Suspect]
     Active Substance: DEXAMETHASONE
     Indication: PLASMA CELL MYELOMA
     Dosage: 40 MILLIGRAM
     Route: 048
     Dates: start: 20160811, end: 20160913
  6. ZELITREX [Suspect]
     Active Substance: VALACYCLOVIR HYDROCHLORIDE
     Dosage: 1 DOSAGE FORMS
     Route: 048
     Dates: start: 20161010, end: 20161012
  7. VELCADE [Suspect]
     Active Substance: BORTEZOMIB
     Indication: PLASMA CELL MYELOMA
     Dosage: 2 MILLIGRAM
     Route: 041
     Dates: start: 20160811, end: 20160912
  8. THALIDOMIDE [Suspect]
     Active Substance: THALIDOMIDE
     Indication: PLASMA CELL MYELOMA
     Dosage: 100 MILLIGRAM
     Route: 048
     Dates: start: 20160811, end: 20160912
  9. ZELITREX [Suspect]
     Active Substance: VALACYCLOVIR HYDROCHLORIDE
     Indication: PROPHYLAXIS
     Dosage: 1 DOSAGE FORMS
     Route: 048
     Dates: start: 20160906, end: 20160927

REACTIONS (5)
  - Pruritus [Recovering/Resolving]
  - Eosinophilia [Recovering/Resolving]
  - Dermatitis exfoliative [Recovered/Resolved]
  - Renal failure [Unknown]
  - Pyrexia [Recovering/Resolving]

NARRATIVE: CASE EVENT DATE: 20160824
